FAERS Safety Report 10062339 (Version 3)
Quarter: 2014Q2

REPORT INFORMATION
  Report Type: Spontaneous
  Country: US (occurrence: US)
  Receive Date: 20140407
  Receipt Date: 20140509
  Transmission Date: 20141212
  Serious: No
  Sender: FDA-Public Use
  Company Number: US-PFIZER INC-2014095702

PATIENT
  Age: 60 Year
  Sex: Female

DRUGS (25)
  1. XELJANZ [Suspect]
     Indication: RHEUMATOID ARTHRITIS
     Dosage: 5 MG, 2X/DAY
     Route: 048
     Dates: start: 20130320, end: 20140319
  2. TYLENOL WITH CODEINE [Concomitant]
     Dosage: UNK
  3. ACYCLOVIR [Concomitant]
     Dosage: (200 MG CAPSULE) AT 1 CAPSULE 5 TIMES A DAY AS NEEDED
  4. REMERON [Concomitant]
     Dosage: UNK
  5. CYMBALTA [Concomitant]
     Dosage: (60MG CAPSULE DELAYED RELEASE PARTICLES) AT 60MG ONCE DAILY
  6. MOBIC [Concomitant]
     Dosage: UNK
  7. METOPROLOL [Concomitant]
     Dosage: UNK
  8. LYRICA [Concomitant]
     Dosage: 100MG (1 CAPSULE) ONCE DAILY IN THE EVENING
  9. LYRICA [Concomitant]
     Dosage: 150MG (1 CAPSULE) ONCE DAILY IN THE MORNING
  10. RELPAX [Concomitant]
     Indication: HEADACHE
     Dosage: 40 MG (1 TABLET) AT ONSET OF HEADACHE ,MAY REPEAT AFTER 2 HOURS IF HEADACHE
  11. OMEPRAZOLE [Concomitant]
     Dosage: (CAPSULE DELAYED RELEASE) AT 20MG (1 CAPSULE) TWICE DAILY
  12. OCUVITE [Concomitant]
     Dosage: UNK
  13. METOPROLOL SUCCINATE [Concomitant]
     Dosage: (TABLET EXTENDED RELEASE 24 HOUR) AT 25MG (1 TABLET) TWICE DAILY
  14. PRAVASTATIN SODIUM [Concomitant]
     Dosage: 20MG (1 TABLET) ONCE DAILY
  15. CITRACAL + D [Concomitant]
     Dosage: (315-250MG-UNIT TABLET) AT 3 TABLETS DAILY
  16. BIOTIN [Concomitant]
     Dosage: UNK
  17. CARISOPRODOL [Concomitant]
     Dosage: 350MG (1 TABLET) ONCE A DAY AT BEDTIME AS NEEDED
  18. SULFASALAZINE [Concomitant]
     Dosage: (TABLET DELAYED RELEASE) AT 1500MG (3 TABLETS) TWICE A DAY
  19. LEVOTHYROXINE SODIUM [Concomitant]
     Dosage: 75MCG (1 TABLET) ON AN EMPTY STOMACH IN THE MORNING ONCE A DAY
  20. OCUVITE LUTEIN [Concomitant]
     Dosage: AS DIRECTED
  21. MIRTAZAPINE [Concomitant]
     Dosage: 15MG (DISPERSIBLE ? TABLET) ONCE A DAY
  22. MELOXICAM [Concomitant]
     Dosage: 15MG (1 TABLET) ONCE A DAY
  23. VOLTAREN [Concomitant]
     Dosage: 1 % GEL APPLY TO JOINTS 4 TIMES A DAY AS NEEDED
  24. METHYLPREDNISOLONE [Concomitant]
     Dosage: 4MG KIT AS DIRECTED
  25. ACETAMINOPHEN W/CODEINE [Concomitant]
     Dosage: 300-30MG TABLET AT 2 TABLETS ONCE A DAY AS NEEDED

REACTIONS (7)
  - Drug hypersensitivity [Unknown]
  - Nausea [Recovered/Resolved]
  - Vomiting [Recovered/Resolved]
  - Gastroenteritis viral [Unknown]
  - Alanine aminotransferase abnormal [Unknown]
  - Blood glucose abnormal [Unknown]
  - Blood alkaline phosphatase increased [Unknown]
